FAERS Safety Report 9366327 (Version 2)
Quarter: 2014Q2

REPORT INFORMATION
  Report Type: Spontaneous
  Country: US (occurrence: US)
  Receive Date: 20130625
  Receipt Date: 20140625
  Transmission Date: 20141212
  Serious: No
  Sender: FDA-Public Use
  Company Number: US-GLAXOSMITHKLINE-A0997678A

PATIENT
  Age: 45 Year
  Sex: Female

DRUGS (12)
  1. VERAMYST [Suspect]
     Indication: RHINITIS ALLERGIC
     Dosage: 27.5MCG UNKNOWN
     Route: 045
     Dates: start: 20090326, end: 201203
  2. FLONASE [Suspect]
     Indication: PRODUCT USED FOR UNKNOWN INDICATION
     Route: 045
  3. ADVAIR [Suspect]
     Indication: PRODUCT USED FOR UNKNOWN INDICATION
     Route: 065
  4. REQUIP [Suspect]
     Indication: PRODUCT USED FOR UNKNOWN INDICATION
     Dosage: 2MG UNKNOWN
     Route: 065
  5. ATENOLOL [Concomitant]
  6. HCTZ [Concomitant]
  7. PROTONIX [Concomitant]
  8. LIPITOR [Concomitant]
  9. COMBIVENT [Concomitant]
  10. PRO-AIR [Concomitant]
  11. SINGULAIR [Concomitant]
  12. ZYRTEC [Concomitant]

REACTIONS (1)
  - Headache [Recovered/Resolved]
